FAERS Safety Report 9794033 (Version 5)
Quarter: 2014Q3

REPORT INFORMATION
  Report Type: Spontaneous
  Country: US (occurrence: US)
  Receive Date: 20140102
  Receipt Date: 20140819
  Transmission Date: 20150326
  Serious: No
  Sender: FDA-Public Use
  Company Number: US-AMGEN-USASP2013089681

PATIENT
  Age: 72 Year
  Sex: Female
  Weight: 62.9 kg

DRUGS (2)
  1. ENBREL [Suspect]
     Active Substance: ETANERCEPT
     Dosage: UNK
     Route: 065
  2. ENBREL [Suspect]
     Active Substance: ETANERCEPT
     Indication: PSORIATIC ARTHROPATHY
     Dosage: 50 MG, QWK
     Route: 058
     Dates: start: 20131114

REACTIONS (8)
  - Dizziness [Not Recovered/Not Resolved]
  - Injection site injury [Recovered/Resolved]
  - Injection site pain [Not Recovered/Not Resolved]
  - Gastrointestinal viral infection [Unknown]
  - Weight decreased [Recovered/Resolved]
  - Injection site bruising [Not Recovered/Not Resolved]
  - Viral infection [Unknown]
  - Hypotension [Recovered/Resolved]

NARRATIVE: CASE EVENT DATE: 2013
